FAERS Safety Report 18944426 (Version 2)
Quarter: 2021Q2

REPORT INFORMATION
  Report Type: Other
  Country: CA (occurrence: CA)
  Receive Date: 20210226
  Receipt Date: 20210414
  Transmission Date: 20210717
  Serious: Yes (Hospitalization, Other)
  Sender: FDA-Public Use
  Company Number: CA-CELLTRION INC.-2021CA002240

PATIENT

DRUGS (7)
  1. RITUXIMAB (UNKNOWN) [Suspect]
     Active Substance: RITUXIMAB
     Indication: NON-HODGKIN^S LYMPHOMA
     Dosage: UNK
     Route: 065
  2. DOXORUBICIN [Concomitant]
     Active Substance: DOXORUBICIN
     Indication: B-CELL LYMPHOMA
  3. RITUXIMAB (UNKNOWN) [Suspect]
     Active Substance: RITUXIMAB
     Dosage: UNK
     Route: 065
  4. RITUXIMAB (UNKNOWN) [Suspect]
     Active Substance: RITUXIMAB
     Indication: B-CELL LYMPHOMA
     Dosage: UNK
     Route: 065
  5. VINCRISTINE [Concomitant]
     Active Substance: VINCRISTINE
     Indication: B-CELL LYMPHOMA
  6. RITUXIMAB (UNKNOWN) [Suspect]
     Active Substance: RITUXIMAB
     Dosage: UNK
     Route: 042
  7. CYCLOPHOSPHAMIDE. [Concomitant]
     Active Substance: CYCLOPHOSPHAMIDE
     Indication: B-CELL LYMPHOMA

REACTIONS (23)
  - Febrile neutropenia [Unknown]
  - Eosinophil count increased [Unknown]
  - Nausea [Unknown]
  - Blood alkaline phosphatase increased [Unknown]
  - Blood chloride increased [Unknown]
  - Blood creatinine increased [Unknown]
  - Lymphocyte count decreased [Unknown]
  - Red cell distribution width increased [Unknown]
  - Haemoglobin decreased [Unknown]
  - Laboratory test abnormal [Unknown]
  - Pancytopenia [Unknown]
  - Vomiting [Unknown]
  - Body temperature increased [Unknown]
  - Glomerular filtration rate decreased [Unknown]
  - Dysuria [Unknown]
  - Haematocrit decreased [Unknown]
  - White blood cell count decreased [Unknown]
  - Platelet count decreased [Unknown]
  - Staphylococcus test positive [Unknown]
  - Chronic kidney disease [Unknown]
  - Fatigue [Unknown]
  - Chills [Unknown]
  - Blood magnesium decreased [Unknown]
